FAERS Safety Report 17913385 (Version 1)
Quarter: 2020Q2

REPORT INFORMATION
  Report Type: Spontaneous
  Country: US (occurrence: US)
  Receive Date: 20200618
  Receipt Date: 20200618
  Transmission Date: 20200714
  Serious: No
  Sender: FDA-Public Use
  Company Number: US-THERAPEUTICSMD-2020TMD01876

PATIENT
  Age: 55 Year
  Sex: Female
  Weight: 102.04 kg

DRUGS (8)
  1. IMVEXXY [Suspect]
     Active Substance: ESTRADIOL
     Indication: DYSPAREUNIA
     Dosage: 10 ?G, 1X/DAY, BEFORE BED
     Route: 067
     Dates: start: 202003, end: 2020
  2. IMVEXXY [Suspect]
     Active Substance: ESTRADIOL
     Dosage: 10 ?G, 2X/WEEK, ON MONDAYS AND THURSDAYS BEFORE BED
     Route: 067
     Dates: start: 2020, end: 202004
  3. PROBIOTICS [Concomitant]
     Active Substance: PROBIOTICS NOS
  4. BLACK COHOSH [Concomitant]
     Active Substance: BLACK COHOSH
  5. LATANOPROST. [Concomitant]
     Active Substance: LATANOPROST
     Dosage: UNK
  6. CALCIUM [Concomitant]
     Active Substance: CALCIUM
  7. IMVEXXY [Suspect]
     Active Substance: ESTRADIOL
     Dosage: 10 ?G, 2X/WEEK, ON MONDAYS AND THURSDAYS BEFORE BED
     Route: 067
     Dates: start: 202004
  8. BIOTIN [Concomitant]
     Active Substance: BIOTIN

REACTIONS (1)
  - Vaginal infection [Recovered/Resolved]

NARRATIVE: CASE EVENT DATE: 202004
